FAERS Safety Report 4690293-8 (Version None)
Quarter: 2005Q2

REPORT INFORMATION
  Report Type: 
  Country: None (occurrence: None)
  Receive Date: 20050615
  Receipt Date: 20050519
  Transmission Date: 20051028
  Serious: Yes (Hospitalization)
  Sender: FDA-Public Use
  Company Number: JP-GLAXOSMITHKLINE-B0381734A

PATIENT
  Age: 6 Year
  Sex: Female

DRUGS (1)
  1. ACYCLOVIR [Suspect]
     Indication: DRUG USE FOR UNKNOWN INDICATION
     Route: 065

REACTIONS (7)
  - CEREBRAL VENTRICLE DILATATION [None]
  - CLONIC CONVULSION [None]
  - DELIRIUM [None]
  - EMOTIONAL DISORDER [None]
  - EPILEPSY [None]
  - IMPULSIVE BEHAVIOUR [None]
  - NERVOUS SYSTEM DISORDER [None]
